FAERS Safety Report 10430767 (Version 1)
Quarter: 2014Q3

REPORT INFORMATION
  Report Type: Spontaneous
  Country: PL (occurrence: PL)
  Receive Date: 20140904
  Receipt Date: 20140904
  Transmission Date: 20150326
  Serious: Yes (Other)
  Sender: FDA-Public Use
  Company Number: PHHY2014PL108758

PATIENT
  Age: 11 Year
  Sex: Male
  Weight: 59 kg

DRUGS (1)
  1. XORIMAX [Suspect]
     Active Substance: CEFUROXIME AXETIL
     Dosage: 250 MG, UNK

REACTIONS (4)
  - Blister [Unknown]
  - Vomiting [Unknown]
  - Blood pressure decreased [Unknown]
  - Syncope [Unknown]
